FAERS Safety Report 9513338 (Version 1)
Quarter: 2013Q1

REPORT INFORMATION
  Report Type: Spontaneous
  Country: US (occurrence: None)
  Receive Date: 20130305
  Receipt Date: 20130305
  Transmission Date: 20140127
  Serious: Yes (Other)
  Sender: FDA-Public Use
  Company Number: 163-21880-12050888

PATIENT
  Age: 69 Year
  Sex: Female
  Weight: 86.64 kg

DRUGS (18)
  1. REVLIMID (LENALIDOMIDE) (15 MILLIGRAM, CAPSULES) [Suspect]
     Indication: PLASMA CELL MYELOMA
     Route: 048
     Dates: start: 20120410, end: 20120420
  2. BACTRIM DS (BACTRIM) [Concomitant]
  3. ACYCLOVIR (ACICLOVIR) (ACICLOVIR) [Concomitant]
  4. ASPIRIN (ACETYLSALICYLIC ACID) [Concomitant]
  5. COLACE (DOCUSATE SODIUM) [Concomitant]
  6. COMPAZINE (PROCHLORPERAZINE EDISYLATE) [Concomitant]
  7. DILTIAZEM HCL (DILTIAZEM HYDROCHLORIDE) [Concomitant]
  8. FOLIC ACID (FOLIC ACID) [Concomitant]
  9. GLUCOSAMINE COMPLEX (GLUCOSAMINE) [Concomitant]
  10. METRONIDAZOLE (METRONIDAZOLE) (CREAM) [Concomitant]
  11. MIRALAX [Concomitant]
  12. OCUVITE (OCUVITE) [Concomitant]
  13. SENNA [Concomitant]
  14. TYLENOL PM (TYLENOL PM) [Concomitant]
  15. VITAMIN B-6 (PYRIDOXINE HYDROCHLORIDE) [Concomitant]
  16. VITAMIN B-12 (CYANOCOBALAMIN) [Concomitant]
  17. VITAMIN C [Concomitant]
  18. ZOFRAN (ONDANSETRON HYDROCHLORIDE) [Concomitant]

REACTIONS (2)
  - Blister [None]
  - Eye swelling [None]
